FAERS Safety Report 7494839-6 (Version None)
Quarter: 2011Q2

REPORT INFORMATION
  Report Type: 
  Country: None (occurrence: None)
  Receive Date: 20110520
  Receipt Date: 20110510
  Transmission Date: 20111010
  Serious: Yes (Hospitalization)
  Sender: FDA-Public Use
  Company Number: B0720298A

PATIENT
  Age: 41 Year
  Sex: Male

DRUGS (1)
  1. ITRACONAZOLE [Suspect]
     Dosage: 200MG PER DAY
     Route: 048

REACTIONS (5)
  - ADRENAL INSUFFICIENCY [None]
  - ASTHENIA [None]
  - HYPONATRAEMIA [None]
  - HYPERKALAEMIA [None]
  - ACIDOSIS [None]
